FAERS Safety Report 7102984-X (Version None)
Quarter: 2010Q4

REPORT INFORMATION
  Report Type: 
  Country: None (occurrence: None)
  Receive Date: 20101115
  Receipt Date: 20080403
  Transmission Date: 20110411
  Serious: No
  Sender: FDA-Public Use
  Company Number: US-KINGPHARMUSA00001-K200800404

PATIENT
  Age: 52 Year
  Sex: Female
  Weight: 97.506 kg

DRUGS (11)
  1. AVINZA [Suspect]
     Indication: NECK PAIN
     Dosage: 240 MG, QD
     Route: 048
     Dates: start: 20080301
  2. ROXICODONE [Concomitant]
     Indication: NECK PAIN
     Dosage: 30 MG, QID
     Route: 048
  3. FENTORA [Concomitant]
     Indication: NECK PAIN
     Dosage: 800 MG, QD
     Route: 048
  4. CYMBALTA [Concomitant]
     Indication: DRUG THERAPY
     Dosage: 800 MG, BID
     Route: 048
  5. TOPAMAX [Concomitant]
     Indication: DRUG THERAPY
     Dosage: 200 MG, BID
     Route: 048
  6. XANAX [Concomitant]
     Indication: DRUG THERAPY
     Dosage: UNK, PRN
     Route: 048
  7. LAMICTAL [Concomitant]
     Dosage: 300 MG, QD
     Route: 048
  8. SEROQUEL [Concomitant]
     Dosage: 800 MG, QD
     Route: 048
  9. CHANTIX [Concomitant]
     Indication: SMOKING CESSATION THERAPY
     Dosage: 1 MG, BID
  10. REQUIP [Concomitant]
     Indication: RESTLESS LEGS SYNDROME
     Dosage: 1 MG, QD
     Route: 048
  11. MULTI-VITAMINS [Concomitant]
     Dosage: UNK, QD
     Route: 048

REACTIONS (3)
  - BREAKTHROUGH PAIN [None]
  - DRUG DIVERSION [None]
  - DRUG INEFFECTIVE [None]
